FAERS Safety Report 5012759-3 (Version None)
Quarter: 2006Q2

REPORT INFORMATION
  Report Type: 
  Country: None (occurrence: None)
  Receive Date: 20060530
  Receipt Date: 20060203
  Transmission Date: 20061013
  Serious: No
  Sender: FDA-Public Use
  Company Number: US-BRISTOL-MYERS SQUIBB COMPANY-13272182

PATIENT
  Age: 50 Year
  Sex: Female
  Weight: 49 kg

DRUGS (8)
  1. ERBITUX [Suspect]
     Indication: COLORECTAL CANCER METASTATIC
  2. BENADRYL [Concomitant]
     Indication: PREMEDICATION
     Route: 042
     Dates: start: 20060203, end: 20060203
  3. PEPCID [Concomitant]
     Indication: PREMEDICATION
     Route: 048
     Dates: start: 20060203, end: 20060203
  4. PREDNISONE [Concomitant]
     Indication: PREMEDICATION
     Route: 048
     Dates: start: 20060203, end: 20060203
  5. AVASTIN [Concomitant]
  6. METHADONE HCL [Concomitant]
  7. HYDROCORTISONE PHOSPHATE [Concomitant]
  8. ZOLOFT [Concomitant]

REACTIONS (2)
  - MUSCLE SPASMS [None]
  - MUSCLE TIGHTNESS [None]
